FAERS Safety Report 7548813-1 (Version None)
Quarter: 2011Q2

REPORT INFORMATION
  Report Type: 
  Country: None (occurrence: None)
  Receive Date: 20110608
  Receipt Date: 20110603
  Transmission Date: 20111010
  Serious: Yes (Other)
  Sender: FDA-Public Use
  Company Number: 2010SP062384

PATIENT
  Age: 45 Year
  Sex: Female
  Weight: 63.05 kg

DRUGS (1)
  1. NUVARING [Suspect]
     Indication: CONTRACEPTION
     Dates: start: 20030407, end: 20081201

REACTIONS (9)
  - RETINAL VEIN OCCLUSION [None]
  - LABYRINTHINE FISTULA [None]
  - BLINDNESS UNILATERAL [None]
  - MACULAR OEDEMA [None]
  - RETINAL HAEMORRHAGE [None]
  - FIBROADENOMA OF BREAST [None]
  - OTITIS MEDIA [None]
  - VISION BLURRED [None]
  - RETINAL VEIN THROMBOSIS [None]
